FAERS Safety Report 25617291 (Version 1)
Quarter: 2025Q3

REPORT INFORMATION
  Report Type: Report from Study
  Country: US (occurrence: US)
  Receive Date: 20250729
  Receipt Date: 20250729
  Transmission Date: 20251021
  Serious: Yes (Hospitalization, Other)
  Sender: JOHNSON AND JOHNSON
  Company Number: US-JNJFOC-20250725882

PATIENT

DRUGS (1)
  1. REMICADE [Suspect]
     Active Substance: INFLIXIMAB
     Indication: Hidradenitis
     Route: 041

REACTIONS (8)
  - Clostridium difficile colitis [Unknown]
  - Squamous cell carcinoma [Unknown]
  - Haemophagocytic lymphohistiocytosis [Unknown]
  - Hospitalisation [Unknown]
  - Renal impairment [Unknown]
  - Vasculitis necrotising [Unknown]
  - Infusion related reaction [Unknown]
  - Off label use [Unknown]
